FAERS Safety Report 5381572-X (Version None)
Quarter: 2007Q2

REPORT INFORMATION
  Report Type: 
  Country: None (occurrence: None)
  Receive Date: 20070629
  Receipt Date: 20070409
  Transmission Date: 20071010
  Serious: Yes (Other)
  Sender: FDA-Public Use
  Company Number: A03200702551

PATIENT
  Age: 41 Year
  Sex: Male

DRUGS (2)
  1. AMBIEN [Suspect]
     Indication: INSOMNIA
     Dosage: 12.5 MG HS-ORAL
     Route: 048
     Dates: start: 20070301, end: 20070301
  2. AMBIEN [Suspect]
     Indication: INSOMNIA
     Dosage: 12.5 MG HS-ORAL 1/4 TABLET HS, THEN 1/2 TABLET THE DAY AFTER-ORAL
     Route: 048
     Dates: start: 20070301, end: 20070301

REACTIONS (3)
  - AGITATION [None]
  - HALLUCINATION [None]
  - SOMNOLENCE [None]
